FAERS Safety Report 8568563 (Version 2)
Quarter: 2013Q2

REPORT INFORMATION
  Report Type: Report from Study
  Country: US (occurrence: US)
  Receive Date: 20120518
  Receipt Date: 20130628
  Transmission Date: 20140414
  Serious: Yes (Other)
  Sender: FDA-Public Use
  Company Number: PHEH2012US010216

PATIENT
  Age: 44 Year
  Sex: Female

DRUGS (5)
  1. GLEEVEC [Suspect]
     Indication: CHRONIC MYELOID LEUKAEMIA
     Dosage: 400 MG, EVERY DAY
     Route: 048
     Dates: start: 2006
  2. METOPROLOL [Concomitant]
     Dosage: UNK UKN, UNK
  3. OXYCODONE/APAP [Concomitant]
     Dosage: UNK UKN, UNK
  4. SOMA [Concomitant]
     Dosage: UNK UKN, UNK
  5. MULTIVITAMINS [Concomitant]
     Dosage: UNK UKN, UNK

REACTIONS (11)
  - Nerve injury [Unknown]
  - Oedema peripheral [Unknown]
  - Abdominal pain upper [Unknown]
  - Nausea [Unknown]
  - Fatigue [Unknown]
  - Eye swelling [Unknown]
  - Oral herpes [Unknown]
  - Alopecia [Unknown]
  - Face oedema [Unknown]
  - Abdominal pain [Unknown]
  - Diarrhoea [Unknown]
